FAERS Safety Report 8495668-7 (Version None)
Quarter: 2012Q3

REPORT INFORMATION
  Report Type: 
  Country: None (occurrence: None)
  Receive Date: 20120709
  Receipt Date: 20120628
  Transmission Date: 20120928
  Serious: Yes (Life-Threatening, Hospitalization, Disabling)
  Sender: FDA-Public Use
  Company Number: DE-ROCHE-1081698

PATIENT
  Age: 80 Year
  Sex: Female

DRUGS (6)
  1. RANIBIZUMAB [Suspect]
     Route: 050
     Dates: start: 20120329
  2. RANIBIZUMAB [Suspect]
     Route: 050
     Dates: start: 20110127
  3. RANIBIZUMAB [Suspect]
     Indication: AGE-RELATED MACULAR DEGENERATION
     Route: 050
     Dates: start: 20080424
  4. RANIBIZUMAB [Suspect]
     Route: 050
     Dates: start: 20100916
  5. RANIBIZUMAB [Suspect]
     Route: 050
     Dates: start: 20120301
  6. RANIBIZUMAB [Suspect]
     Route: 050
     Dates: start: 20120503

REACTIONS (2)
  - CEREBROVASCULAR ACCIDENT [None]
  - AGE-RELATED MACULAR DEGENERATION [None]
